FAERS Safety Report 24145552 (Version 1)
Quarter: 2024Q3

REPORT INFORMATION
  Report Type: Spontaneous
  Country: FR (occurrence: FR)
  Receive Date: 20240729
  Receipt Date: 20240729
  Transmission Date: 20241017
  Serious: Yes (Hospitalization, Other)
  Sender: CHEPLAPHARM
  Company Number: None

PATIENT
  Age: 38 Year
  Sex: Female

DRUGS (12)
  1. OLANZAPINE [Suspect]
     Active Substance: OLANZAPINE
     Dosage: 3 TABLETS OF 10 MG
     Route: 048
     Dates: start: 20240620, end: 20240620
  2. TEGRETOL [Suspect]
     Active Substance: CARBAMAZEPINE
     Dosage: 1 1/2 TABLET/FILM-COATED TABLET WITH PROLONGED RELEASE
     Route: 048
     Dates: start: 20240620, end: 20240620
  3. TROPATEPINE HYDROCHLORIDE [Suspect]
     Active Substance: TROPATEPINE HYDROCHLORIDE
     Dosage: 1 TABLET OF 10 MG?DAILY DOSE: 1 DOSAGE FORM
     Route: 048
     Dates: start: 20240620, end: 20240620
  4. TRANXENE [Suspect]
     Active Substance: CLORAZEPATE DIPOTASSIUM
     Dosage: 1 TABLET
     Route: 048
     Dates: start: 20240620, end: 20240620
  5. LORMETAZEPAM [Concomitant]
     Active Substance: LORMETAZEPAM
     Dosage: 0/0/0/1?DAILY DOSE: 1 DOSAGE FORM
     Dates: start: 20240620
  6. TROPATEPINE HYDROCHLORIDE [Concomitant]
     Active Substance: TROPATEPINE HYDROCHLORIDE
     Dosage: 1/0/1?DAILY DOSE: 2 DOSAGE FORM
     Dates: start: 20240620
  7. HALDOL [Concomitant]
     Active Substance: HALOPERIDOL
     Dosage: 1/1/1?DAILY DOSE: 3 DOSAGE FORM
     Dates: start: 20240620
  8. VALIUM [Concomitant]
     Active Substance: DIAZEPAM
     Dosage: 5MG, 1/1/1/1 ?DAILY DOSE: 4 DOSAGE FORM
     Dates: start: 20240620
  9. VALIUM [Concomitant]
     Active Substance: DIAZEPAM
     Dosage: 10MG, 1/0/1/1 ?DAILY DOSE: 3 DOSAGE FORM
  10. ATARAX [Concomitant]
     Active Substance: HYDROXYZINE HYDROCHLORIDE
     Dosage: 2/2/2?DAILY DOSE: 6 DOSAGE FORM
     Dates: start: 20240620
  11. DESOGESTREL [Concomitant]
     Active Substance: DESOGESTREL
     Dates: start: 20240620
  12. OMEPRAZOLE [Concomitant]
     Active Substance: OMEPRAZOLE
     Dosage: 1/0/0 ?DAILY DOSE: 1 DOSAGE FORM
     Dates: start: 20240620

REACTIONS (3)
  - Hypotension [Recovered/Resolved]
  - Altered state of consciousness [Unknown]
  - Wrong product administered [Recovered/Resolved]

NARRATIVE: CASE EVENT DATE: 20240620
